FAERS Safety Report 6999302-4 (Version None)
Quarter: 2010Q3

REPORT INFORMATION
  Report Type: 
  Country: None (occurrence: None)
  Receive Date: 20100920
  Receipt Date: 20100906
  Transmission Date: 20110219
  Serious: Yes (Death, Hospitalization, Other)
  Sender: FDA-Public Use
  Company Number: PHHY2010AU58740

PATIENT
  Age: 61 Year
  Sex: Male

DRUGS (2)
  1. CYCLOSPORINE [Suspect]
     Indication: STEM CELL TRANSPLANT
  2. PREDNISOLONE [Suspect]
     Indication: STEM CELL TRANSPLANT
     Dosage: MORE THAN 25MG/KG

REACTIONS (7)
  - ACUTE GRAFT VERSUS HOST DISEASE [None]
  - ACUTE RESPIRATORY DISTRESS SYNDROME [None]
  - BACTERIAL SEPSIS [None]
  - COUGH [None]
  - H1N1 INFLUENZA [None]
  - OROPHARYNGEAL PAIN [None]
  - PYREXIA [None]
